FAERS Safety Report 13469453 (Version 1)
Quarter: 2017Q2

REPORT INFORMATION
  Report Type: Spontaneous
  Country: DE (occurrence: DE)
  Receive Date: 20170421
  Receipt Date: 20170421
  Transmission Date: 20170830
  Serious: Yes (Other)
  Sender: FDA-Public Use
  Company Number: DE-MERCK KGAA-1065689

PATIENT
  Age: 82 Year
  Sex: Female

DRUGS (2)
  1. NOVOTHYROX [Suspect]
     Active Substance: LEVOTHYROXINE SODIUM
     Indication: POST PROCEDURAL HYPOTHYROIDISM
  2. ASPIRIN. [Concomitant]
     Active Substance: ASPIRIN

REACTIONS (8)
  - Nasal disorder [Unknown]
  - Muscle spasms [Unknown]
  - Balance disorder [Unknown]
  - Nervousness [Unknown]
  - Influenza [Unknown]
  - Musculoskeletal stiffness [Unknown]
  - Tremor [Unknown]
  - Migraine [Unknown]
